FAERS Safety Report 21504919 (Version 1)
Quarter: 2022Q4

REPORT INFORMATION
  Report Type: Spontaneous
  Country: US (occurrence: US)
  Receive Date: 20221025
  Receipt Date: 20221025
  Transmission Date: 20230112
  Serious: No
  Sender: FDA-Public Use
  Company Number: US-ELI_LILLY_AND_COMPANY-US202210004670

PATIENT
  Age: 53 Year
  Sex: Male

DRUGS (1)
  1. MOUNJARO [Suspect]
     Active Substance: TIRZEPATIDE
     Indication: Weight decreased
     Dosage: 2.5 MG, UNKNOWN
     Route: 065
     Dates: start: 20221006

REACTIONS (6)
  - Muscle spasms [Unknown]
  - Off label use [Unknown]
  - Abdominal pain upper [Unknown]
  - Nausea [Unknown]
  - Decreased appetite [Unknown]
  - Dyspepsia [Unknown]

NARRATIVE: CASE EVENT DATE: 20221006
